FAERS Safety Report 25688376 (Version 1)
Quarter: 2025Q3

REPORT INFORMATION
  Report Type: Report from Study
  Country: US (occurrence: US)
  Receive Date: 20250818
  Receipt Date: 20250818
  Transmission Date: 20251021
  Serious: Yes (Other)
  Sender: ROCHE
  Company Number: US-ROCHE-10000298967

PATIENT

DRUGS (4)
  1. RITUXIMAB [Suspect]
     Active Substance: RITUXIMAB
     Indication: Relapsing multiple sclerosis
     Route: 065
  2. OCRELIZUMAB [Suspect]
     Active Substance: OCRELIZUMAB
     Indication: Relapsing multiple sclerosis
     Route: 065
  3. OFATUMUMAB [Suspect]
     Active Substance: OFATUMUMAB
     Indication: Relapsing multiple sclerosis
     Route: 065
  4. UBLITUXIMAB [Suspect]
     Active Substance: UBLITUXIMAB
     Indication: Relapsing multiple sclerosis
     Route: 065

REACTIONS (14)
  - Infection [Unknown]
  - Hypogammaglobulinaemia [Unknown]
  - Upper respiratory tract infection [Unknown]
  - Urinary tract infection [Unknown]
  - Injection site reaction [Unknown]
  - Immunoglobulins decreased [Unknown]
  - Herpes zoster [Unknown]
  - Liver function test increased [Unknown]
  - Vaccination failure [Unknown]
  - Hypersensitivity [Unknown]
  - Fungal infection [Unknown]
  - Skin infection [Unknown]
  - Immune-mediated enterocolitis [Unknown]
  - Progressive multifocal leukoencephalopathy [Unknown]
